FAERS Safety Report 7811438-4 (Version None)
Quarter: 2011Q4

REPORT INFORMATION
  Report Type: 
  Country: None (occurrence: None)
  Receive Date: 20111013
  Receipt Date: 20111010
  Transmission Date: 20120403
  Serious: Yes (Other)
  Sender: FDA-Public Use
  Company Number: US-PFIZER INC-2011241716

PATIENT
  Sex: Female
  Weight: 57 kg

DRUGS (2)
  1. PRISTIQ [Suspect]
     Indication: DEPRESSION
     Dosage: 50 MG, 1X/DAY
     Route: 048
     Dates: start: 20110501, end: 20110826
  2. TRILEPTAL [Concomitant]
     Indication: BIPOLAR II DISORDER
     Dosage: UNK

REACTIONS (3)
  - CRYING [None]
  - NAUSEA [None]
  - MALAISE [None]
